FAERS Safety Report 16795204 (Version 4)
Quarter: 2020Q1

REPORT INFORMATION
  Report Type: Spontaneous
  Country: US (occurrence: US)
  Receive Date: 20190911
  Receipt Date: 20200213
  Transmission Date: 20200409
  Serious: Yes (Other)
  Sender: FDA-Public Use
  Company Number: US-PFIZER INC-2019389155

PATIENT
  Age: 68 Year

DRUGS (1)
  1. PREMARIN [Suspect]
     Active Substance: ESTROGENS, CONJUGATED
     Indication: HOT FLUSH
     Dosage: UNK

REACTIONS (5)
  - Neoplasm malignant [Unknown]
  - Metastases to central nervous system [Unknown]
  - Tooth abscess [Unknown]
  - Memory impairment [Unknown]
  - Drug ineffective [Unknown]
